FAERS Safety Report 19070026 (Version 1)
Quarter: 2021Q1

REPORT INFORMATION
  Report Type: Report from Study
  Country: FR (occurrence: FR)
  Receive Date: 20210329
  Receipt Date: 20210329
  Transmission Date: 20210420
  Serious: Yes (Other)
  Sender: FDA-Public Use
  Company Number: FR-PFIZER INC-2021307328

PATIENT
  Age: 50 Year
  Sex: Male
  Weight: 78 kg

DRUGS (10)
  1. HUMIRA [Suspect]
     Active Substance: ADALIMUMAB
     Indication: PSORIASIS
     Dosage: 80 MG, WEEKLY
     Route: 058
     Dates: start: 20151130, end: 20151207
  2. DEXERYL [CHLORPHENAMINE MALEATE;DEXTROMETHORPHAN HYDROBROMIDE;GUAIFENE [Concomitant]
     Dosage: UNK
  3. NO SUBJECT DRUG [Suspect]
     Active Substance: UNSPECIFIED INGREDIENT
     Dosage: NO DOSE GIVEN
  4. DEPAKINE [VALPROIC ACID] [Concomitant]
     Active Substance: VALPROIC ACID
     Dosage: UNK
     Dates: start: 2003
  5. LAMICTAL [Concomitant]
     Active Substance: LAMOTRIGINE
     Dosage: UNK
     Dates: start: 202002
  6. METHOTREXATE SODIUM. [Suspect]
     Active Substance: METHOTREXATE SODIUM
     Indication: PSORIASIS
     Dosage: UNK
     Dates: start: 201008, end: 201010
  7. METHOTREXATE SODIUM. [Suspect]
     Active Substance: METHOTREXATE SODIUM
     Dosage: 15 MG, EVERY 7 DAYS
     Route: 048
     Dates: start: 20151001, end: 20151106
  8. ACITRETINE [Suspect]
     Active Substance: ACITRETIN
     Indication: PSORIASIS
     Dosage: 20 MG, 1X/DAY
     Route: 048
     Dates: start: 201004, end: 201006
  9. HUMIRA [Suspect]
     Active Substance: ADALIMUMAB
     Dosage: 40 MG EVERY 2 WEEKS
     Route: 058
     Dates: start: 20151207
  10. DAIVOBET [BETAMETHASONE DIPROPIONATE;CALCIPOTRIOL] [Concomitant]
     Dosage: UNK

REACTIONS (1)
  - COVID-19 [Recovered/Resolved]

NARRATIVE: CASE EVENT DATE: 20210210
